FAERS Safety Report 6413724-1 (Version None)
Quarter: 2009Q4

REPORT INFORMATION
  Report Type: 
  Country: None (occurrence: None)
  Receive Date: 20091023
  Receipt Date: 20091023
  Transmission Date: 20100525
  Serious: Yes (Hospitalization)
  Sender: FDA-Public Use
  Company Number: None

PATIENT
  Sex: Female
  Weight: 81.6475 kg

DRUGS (1)
  1. RELISTOR [Suspect]
     Indication: CONSTIPATION
     Dosage: 12MG EVERY OTHER DAY UNDER SKIN OF ABDOMEN
     Dates: start: 20091016

REACTIONS (14)
  - ABDOMINAL PAIN [None]
  - ABDOMINAL RIGIDITY [None]
  - DEHYDRATION [None]
  - FEAR [None]
  - FEELING COLD [None]
  - FEELING HOT [None]
  - MALAISE [None]
  - NAUSEA [None]
  - NO THERAPEUTIC RESPONSE [None]
  - PAIN [None]
  - RESPIRATORY DISORDER [None]
  - SCREAMING [None]
  - SKIN BURNING SENSATION [None]
  - VOMITING [None]
